FAERS Safety Report 11279458 (Version 2)
Quarter: 2015Q3

REPORT INFORMATION
  Report Type: Spontaneous
  Country: US (occurrence: US)
  Receive Date: 20150717
  Receipt Date: 20150730
  Transmission Date: 20151125
  Serious: Yes (Hospitalization, Congenital Anomaly)
  Sender: FDA-Public Use
  Company Number: US-APOTEX-2015AP010694

PATIENT

DRUGS (1)
  1. PAXIL [Suspect]
     Active Substance: PAROXETINE HYDROCHLORIDE
     Indication: ANXIETY DISORDER
     Dosage: UNK
     Route: 064

REACTIONS (8)
  - Hydrocephalus [Unknown]
  - Foetal exposure during pregnancy [Unknown]
  - Moebius II syndrome [Unknown]
  - Developmental delay [Unknown]
  - Nystagmus [Unknown]
  - Hypotonia [Unknown]
  - Strabismus [Unknown]
  - Eye movement disorder [Unknown]
